FAERS Safety Report 15481701 (Version 1)
Quarter: 2018Q4

REPORT INFORMATION
  Report Type: Spontaneous
  Country: US (occurrence: US)
  Receive Date: 20181010
  Receipt Date: 20181010
  Transmission Date: 20190205
  Serious: Yes (Hospitalization)
  Sender: FDA-Public Use
  Company Number: US-ACCORD-073187

PATIENT
  Age: 10 Month
  Sex: Female

DRUGS (1)
  1. GLIPIZIDE. [Suspect]
     Active Substance: GLIPIZIDE

REACTIONS (5)
  - Hypothermia [Recovering/Resolving]
  - Accidental exposure to product [Unknown]
  - Toxicity to various agents [Unknown]
  - Hypotonia [Recovering/Resolving]
  - Mental status changes [Recovering/Resolving]
